FAERS Safety Report 7834075-4 (Version None)
Quarter: 2011Q4

REPORT INFORMATION
  Report Type: 
  Country: None (occurrence: None)
  Receive Date: 20111024
  Receipt Date: 20111024
  Transmission Date: 20120403
  Serious: Yes (Life-Threatening)
  Sender: FDA-Public Use
  Company Number: None

PATIENT
  Sex: Male
  Weight: 81.646 kg

DRUGS (1)
  1. ENBREL [Suspect]
     Indication: PSORIATIC ARTHROPATHY
     Dosage: 50MG
     Route: 058
     Dates: start: 20040101, end: 20110815

REACTIONS (3)
  - PROSTATE CANCER [None]
  - ABDOMINAL PAIN [None]
  - ABDOMINAL DISCOMFORT [None]
